FAERS Safety Report 9013261 (Version 1)
Quarter: 2013Q1

REPORT INFORMATION
  Report Type: Spontaneous
  Country: US (occurrence: None)
  Receive Date: 20130107
  Receipt Date: 20130107
  Transmission Date: 20140127
  Serious: Yes (Hospitalization)
  Sender: FDA-Public Use
  Company Number: None

PATIENT
  Age: 73 Year
  Sex: Female
  Weight: 74.84 kg

DRUGS (1)
  1. NITROFURANTOIN [Suspect]
     Indication: URINARY TRACT INFECTION
     Route: 048
     Dates: start: 20121214, end: 20121218

REACTIONS (21)
  - Nausea [None]
  - Headache [None]
  - Pain [None]
  - Euphoric mood [None]
  - Vomiting [None]
  - Feeling abnormal [None]
  - Chills [None]
  - Pyrexia [None]
  - Diarrhoea [None]
  - Pain [None]
  - Arthralgia [None]
  - Malaise [None]
  - Decreased appetite [None]
  - Thirst [None]
  - Joint swelling [None]
  - Local swelling [None]
  - Joint swelling [None]
  - Urticaria [None]
  - Chromaturia [None]
  - Asthenia [None]
  - Drug hypersensitivity [None]
